FAERS Safety Report 5190768-1 (Version None)
Quarter: 2006Q4

REPORT INFORMATION
  Report Type: 
  Country: None (occurrence: None)
  Receive Date: 20061222
  Receipt Date: 20061215
  Transmission Date: 20070319
  Serious: Yes (Other)
  Sender: FDA-Public Use
  Company Number: GB-ROCHE-475833

PATIENT
  Age: 83 Year
  Sex: Female
  Weight: 56 kg

DRUGS (11)
  1. BONIVA [Suspect]
     Indication: OSTEOPOROSIS
     Route: 048
     Dates: start: 20060726
  2. ASPIRIN [Concomitant]
  3. BECLOMETHASONE DIPROPIONATE [Concomitant]
  4. CALCICHEW [Concomitant]
  5. CANDESARTAN [Concomitant]
  6. EFORMOTEROL [Concomitant]
  7. FUROSEMIDE [Concomitant]
  8. IMIPRAMINE [Concomitant]
  9. OMEPRAZOLE [Concomitant]
  10. PREDNISOLONE [Concomitant]
     Dates: start: 20060701
  11. LEVOTHYROXINE SODIUM [Concomitant]

REACTIONS (3)
  - BLOOD CREATININE INCREASED [None]
  - BLOOD UREA INCREASED [None]
  - RENAL IMPAIRMENT [None]
